FAERS Safety Report 5046853-8 (Version None)
Quarter: 2006Q3

REPORT INFORMATION
  Report Type: 
  Country: None (occurrence: None)
  Receive Date: 20060705
  Receipt Date: 20060705
  Transmission Date: 20061208
  Serious: Yes (Other)
  Sender: FDA-Public Use
  Company Number: None

PATIENT
  Sex: Female
  Weight: 63.5036 kg

DRUGS (2)
  1. LEVAQUIN [Suspect]
     Indication: EAR INFECTION
     Dates: start: 20060401, end: 20060410
  2. LEVAQUIN [Suspect]
     Indication: PHARYNGITIS
     Dates: start: 20060401, end: 20060410

REACTIONS (2)
  - NEUROTOXICITY [None]
  - PAIN [None]
